FAERS Safety Report 14510510 (Version 1)
Quarter: 2018Q1

REPORT INFORMATION
  Report Type: Spontaneous
  Country: TW (occurrence: TW)
  Receive Date: 20180209
  Receipt Date: 20180209
  Transmission Date: 20180509
  Serious: Yes (Other)
  Sender: FDA-Public Use
  Company Number: TW-ASTRAZENECA-2018SE14796

PATIENT
  Age: 64 Year
  Sex: Female

DRUGS (6)
  1. GLIMEPIRIDE. [Concomitant]
     Active Substance: GLIMEPIRIDE
  2. CHINESE TRADITIONAL MEDICINE NOS [Concomitant]
     Active Substance: UNSPECIFIED INGREDIENT
     Indication: PAIN
  3. METFORMIN [Concomitant]
     Active Substance: METFORMIN HYDROCHLORIDE
  4. DAPAGLIFLOZIN. [Suspect]
     Active Substance: DAPAGLIFLOZIN
     Route: 048
  5. MIGLITOL. [Concomitant]
     Active Substance: MIGLITOL
  6. SITAGLIPTIN/METFORMIN [Concomitant]
     Active Substance: METFORMIN\SITAGLIPTIN
     Dosage: 50/850 MG BID

REACTIONS (1)
  - Diabetic ketoacidosis [Recovered/Resolved]
